FAERS Safety Report 25628370 (Version 1)
Quarter: 2025Q3

REPORT INFORMATION
  Report Type: Spontaneous
  Country: US (occurrence: None)
  Receive Date: 20250731
  Receipt Date: 20250731
  Transmission Date: 20251021
  Serious: Yes (Hospitalization)
  Sender: FDA-CTU
  Company Number: None

PATIENT
  Age: 63 Year
  Sex: Male

DRUGS (2)
  1. RIBAVIRIN [Suspect]
     Active Substance: RIBAVIRIN
     Dosage: EPCLUSA TAB 400-100MG: 1 TABLET DAILY RIBAVIR
  2. EPCLUSA [Suspect]
     Active Substance: SOFOSBUVIR\VELPATASVIR
     Dosage: EPCLUSA TAB 400-100MG: 1 TABLET DAILY

REACTIONS (4)
  - Unresponsive to stimuli [None]
  - Headache [None]
  - Fatigue [None]
  - Ammonia increased [None]
